FAERS Safety Report 6641566-0 (Version None)
Quarter: 2010Q1

REPORT INFORMATION
  Report Type: 
  Country: None (occurrence: None)
  Receive Date: 20100317
  Receipt Date: 20100317
  Transmission Date: 20100710
  Serious: Yes (Other)
  Sender: FDA-Public Use
  Company Number: None

PATIENT
  Age: 86 Year
  Sex: Female
  Weight: 72.4 kg

DRUGS (14)
  1. INSULIN ASPART [Suspect]
     Indication: TYPE 2 DIABETES MELLITUS
     Dosage: 10 UNITS TID/MEALS SQ
     Route: 058
     Dates: start: 20100119
  2. HEPARIN [Concomitant]
  3. APAP TAB [Concomitant]
  4. AMIODARONE HCL [Concomitant]
  5. ATORVASTATIN CALCIUM [Concomitant]
  6. CARVEDILOL [Concomitant]
  7. DOCUSATE [Concomitant]
  8. FUROSEMIDE [Concomitant]
  9. HALOPERIDOL [Concomitant]
  10. HYDROCHLOROTHIAZIDE [Concomitant]
  11. LANSOPRAZOLE [Concomitant]
  12. ... [Concomitant]
  13. CLOPIDOGREL [Concomitant]
  14. SENNA [Concomitant]

REACTIONS (1)
  - BLOOD GLUCOSE DECREASED [None]
